FAERS Safety Report 18241926 (Version 2)
Quarter: 2020Q3

REPORT INFORMATION
  Report Type: Report from Study
  Country: IT (occurrence: IT)
  Receive Date: 20200908
  Receipt Date: 20200915
  Transmission Date: 20201103
  Serious: Yes (Other)
  Sender: FDA-Public Use
  Company Number: NVSC2020IT243724

PATIENT
  Age: 62 Year
  Sex: Female

DRUGS (1)
  1. FINGOLIMOD. [Suspect]
     Active Substance: FINGOLIMOD
     Indication: MULTIPLE SCLEROSIS
     Dosage: UNK
     Route: 065
     Dates: start: 201104

REACTIONS (8)
  - Demyelination [Unknown]
  - Optic neuritis [Recovering/Resolving]
  - Nausea [Unknown]
  - Asthenia [Unknown]
  - Gait disturbance [Unknown]
  - Lymphocyte count decreased [Unknown]
  - COVID-19 [Unknown]
  - Pyrexia [Unknown]

NARRATIVE: CASE EVENT DATE: 2013
